FAERS Safety Report 8199525-5 (Version None)
Quarter: 2012Q1

REPORT INFORMATION
  Report Type: 
  Country: None (occurrence: None)
  Receive Date: 20120310
  Receipt Date: 20120305
  Transmission Date: 20120608
  Serious: Yes (Other)
  Sender: FDA-Public Use
  Company Number: US-PFIZER INC-2012033301

PATIENT
  Sex: Female
  Weight: 61.224 kg

DRUGS (10)
  1. CYMBALTA [Concomitant]
     Indication: MUSCULOSKELETAL DISORDER
  2. LYRICA [Suspect]
     Indication: FIBROMYALGIA
     Dosage: 50 MG, 3X/DAY
     Route: 048
     Dates: start: 20120101, end: 20120101
  3. CYMBALTA [Concomitant]
     Indication: NEURITIS
     Dosage: 30 MG, DAILY
     Dates: start: 20120118
  4. LYRICA [Suspect]
     Indication: PAIN
     Dosage: 50MG DAILY
     Route: 048
     Dates: start: 20120101, end: 20120203
  5. LYRICA [Suspect]
     Dosage: 50 MG
     Route: 048
     Dates: start: 20120101, end: 20120206
  6. LYRICA [Suspect]
     Dosage: 150 MG, 2X/DAY
     Route: 048
  7. CYMBALTA [Concomitant]
     Indication: BIPOLAR I DISORDER
  8. TOPAMAX [Concomitant]
     Indication: MIGRAINE
     Dosage: 100 MG, 2X/DAY
     Dates: start: 20090701
  9. CYMBALTA [Concomitant]
     Indication: PAIN
  10. LYRICA [Suspect]
     Dosage: 50 MG, 2X/DAY
     Route: 048
     Dates: start: 20120204

REACTIONS (11)
  - HYPERSENSITIVITY [None]
  - LIP SWELLING [None]
  - PHARYNGEAL OEDEMA [None]
  - PARAESTHESIA MUCOSAL [None]
  - INFLUENZA [None]
  - PARAESTHESIA ORAL [None]
  - URTICARIA [None]
  - SWELLING FACE [None]
  - ABDOMINAL PAIN UPPER [None]
  - SWOLLEN TONGUE [None]
  - PAIN [None]
